FAERS Safety Report 25492457 (Version 1)
Quarter: 2025Q2

REPORT INFORMATION
  Report Type: Spontaneous
  Country: US (occurrence: US)
  Receive Date: 20250630
  Receipt Date: 20250630
  Transmission Date: 20250717
  Serious: Yes (Death, Hospitalization, Other)
  Sender: APOTEX
  Company Number: US-APOTEX-2025AP008964

PATIENT
  Age: 68 Year
  Sex: Male

DRUGS (1)
  1. ACETAMINOPHEN [Suspect]
     Active Substance: ACETAMINOPHEN
     Indication: Product used for unknown indication
     Route: 065

REACTIONS (8)
  - Acute hepatic failure [Fatal]
  - Acute kidney injury [Fatal]
  - Shock [Fatal]
  - Pulse absent [Fatal]
  - Overdose [Fatal]
  - Hepatitis [Fatal]
  - Metabolic encephalopathy [Unknown]
  - Upper gastrointestinal haemorrhage [Unknown]
